FAERS Safety Report 16662038 (Version 2)
Quarter: 2020Q1

REPORT INFORMATION
  Report Type: Report from Study
  Country: US (occurrence: US)
  Receive Date: 20190802
  Receipt Date: 20200129
  Transmission Date: 20200409
  Serious: No
  Sender: FDA-Public Use
  Company Number: US-EXELIXIS-CABO-19019484

PATIENT
  Age: 31 Year
  Sex: Female

DRUGS (7)
  1. COMETRIQ [Suspect]
     Active Substance: CABOZANTINIB S-MALATE
     Dosage: 80 MG, UNK (5 DAYS A WEEK)
     Route: 048
     Dates: start: 20190401
  2. CALCIUM [Concomitant]
     Active Substance: CALCIUM
  3. PROAIR HFA [Concomitant]
     Active Substance: ALBUTEROL SULFATE
  4. COMETRIQ [Suspect]
     Active Substance: CABOZANTINIB S-MALATE
     Indication: THYROID CANCER
     Dosage: 80 MG, UNK (5 DAYS A WEEK)
     Route: 048
     Dates: start: 20181008
  5. VITAMIN D [Concomitant]
     Active Substance: VITAMIN D NOS
  6. ALBUTEROL. [Concomitant]
     Active Substance: ALBUTEROL
  7. BREO ELLIPTA [Concomitant]
     Active Substance: FLUTICASONE FUROATE\VILANTEROL TRIFENATATE

REACTIONS (2)
  - Limb discomfort [Unknown]
  - Wisdom teeth removal [Unknown]

NARRATIVE: CASE EVENT DATE: 201903
